FAERS Safety Report 22930604 (Version 2)
Quarter: 2024Q4

REPORT INFORMATION
  Report Type: Spontaneous
  Country: US (occurrence: US)
  Receive Date: 20230911
  Receipt Date: 20241210
  Transmission Date: 20250114
  Serious: No
  Sender: BIOGEN
  Company Number: US-BIOGEN-2022BI01136228

PATIENT
  Sex: Male

DRUGS (3)
  1. VUMERITY [Suspect]
     Active Substance: DIROXIMEL FUMARATE
     Indication: Multiple sclerosis
     Dosage: STARTING DOSE
     Route: 050
     Dates: start: 20210412
  2. VUMERITY [Suspect]
     Active Substance: DIROXIMEL FUMARATE
     Dosage: MAINTENANCE DOSE
     Route: 050
  3. IBUPROFEN [Concomitant]
     Active Substance: IBUPROFEN
     Route: 050

REACTIONS (4)
  - Intentional product misuse [Unknown]
  - Product dose omission issue [Unknown]
  - Flushing [Unknown]
  - Erythema [Unknown]
